FAERS Safety Report 9458468 (Version 1)
Quarter: 2013Q3

REPORT INFORMATION
  Report Type: Report from Study
  Country: US (occurrence: US)
  Receive Date: 20130814
  Receipt Date: 20130814
  Transmission Date: 20140515
  Serious: Yes (Other)
  Sender: FDA-Public Use
  Company Number: US-JNJFOC-20130803857

PATIENT
  Age: 67 Year
  Sex: Male
  Weight: 97.07 kg

DRUGS (10)
  1. XARELTO [Suspect]
     Indication: ATRIAL FIBRILLATION
     Route: 048
     Dates: start: 201307
  2. XARELTO [Suspect]
     Indication: CEREBROVASCULAR ACCIDENT PROPHYLAXIS
     Route: 048
     Dates: start: 201307
  3. ASPIRIN [Suspect]
     Indication: PRODUCT USED FOR UNKNOWN INDICATION
     Dosage: DAILY
     Route: 048
  4. COQ10 [Concomitant]
     Dosage: DAILY
     Route: 048
  5. BENICAR [Concomitant]
     Indication: CARDIOMYOPATHY
     Route: 048
     Dates: start: 2013
  6. LIPITOR [Concomitant]
     Indication: BLOOD CHOLESTEROL INCREASED
     Route: 048
     Dates: start: 2012
  7. RANEXA [Concomitant]
     Indication: CARDIOMYOPATHY
     Route: 048
     Dates: start: 201306
  8. MULTAQ [Concomitant]
     Indication: CARDIOMYOPATHY
     Route: 048
     Dates: start: 2012
  9. CARVEDILOL [Concomitant]
     Indication: HYPERTENSION
     Route: 048
     Dates: start: 2012
  10. FUROSEMIDE [Concomitant]
     Indication: FLUID RETENTION
     Dosage: MORNING AND NIGHT
     Route: 048
     Dates: start: 2009

REACTIONS (4)
  - Epistaxis [Recovered/Resolved]
  - Coagulation time prolonged [Recovered/Resolved]
  - Sneezing [Recovered/Resolved]
  - Drug dose omission [Unknown]
